FAERS Safety Report 19386153 (Version 1)
Quarter: 2021Q2

REPORT INFORMATION
  Report Type: Spontaneous
  Country: US (occurrence: US)
  Receive Date: 20210607
  Receipt Date: 20210607
  Transmission Date: 20210717
  Serious: Yes (Hospitalization)
  Sender: FDA-Public Use
  Company Number: US-PRINSTON PHARMACEUTICAL INC.-2021PRN00202

PATIENT
  Age: 14 Year
  Sex: Female

DRUGS (1)
  1. RISPERIDONE. [Suspect]
     Active Substance: RISPERIDONE
     Route: 048

REACTIONS (5)
  - Delirium [Recovering/Resolving]
  - Overdose [Recovered/Resolved]
  - Hypotension [Recovering/Resolving]
  - Tachycardia [Recovering/Resolving]
  - Urinary retention [Recovering/Resolving]
